FAERS Safety Report 12224494 (Version 1)
Quarter: 2016Q1

REPORT INFORMATION
  Report Type: Spontaneous
  Country: FR (occurrence: FR)
  Receive Date: 20160331
  Receipt Date: 20160331
  Transmission Date: 20160526
  Serious: Yes (Life-Threatening)
  Sender: FDA-Public Use
  Company Number: FR-009507513-1603FRA013028

PATIENT
  Age: 48 Year
  Sex: Male

DRUGS (6)
  1. NOCTAMIDE [Suspect]
     Active Substance: LORMETAZEPAM
     Indication: INSOMNIA
     Dosage: 35 TABLETS, ONCE
     Route: 048
     Dates: start: 20160113, end: 20160113
  2. VALIUM [Suspect]
     Active Substance: DIAZEPAM
     Indication: ANXIETY
     Dosage: 10 TABLETS, ONCE
     Route: 048
     Dates: start: 20160113, end: 20160113
  3. NORSET [Suspect]
     Active Substance: MIRTAZAPINE
     Indication: MAJOR DEPRESSION
     Dosage: 16 TABLETS, ONCE
     Route: 048
     Dates: start: 20160113, end: 20160113
  4. TERCIAN [Suspect]
     Active Substance: CYAMEMAZINE
     Indication: ANXIETY
     Dosage: 45 TABLETS, ONCE
     Route: 048
     Dates: start: 20160113, end: 20160113
  5. FLUVASTATIN SODIUM. [Suspect]
     Active Substance: FLUVASTATIN SODIUM
     Indication: HYPERCHOLESTEROLAEMIA
     Dosage: 15 TABLETS, ONCE
     Route: 048
     Dates: start: 20160113, end: 20160113
  6. XEROQUEL [Suspect]
     Active Substance: QUETIAPINE FUMARATE
     Indication: MAJOR DEPRESSION
     Dosage: 24 TABLETS, ONCE
     Route: 048
     Dates: start: 20160113, end: 20160113

REACTIONS (3)
  - Coma [Recovered/Resolved]
  - Hypotonia [Recovered/Resolved]
  - Bradypnoea [Recovered/Resolved]

NARRATIVE: CASE EVENT DATE: 20160113
